FAERS Safety Report 6332713-9 (Version None)
Quarter: 2009Q3

REPORT INFORMATION
  Report Type: 
  Country: None (occurrence: None)
  Receive Date: 20090828
  Receipt Date: 20090825
  Transmission Date: 20100115
  Serious: Yes (Death)
  Sender: FDA-Public Use
  Company Number: GB-TEVA-205931ISR

PATIENT
  Sex: Female

DRUGS (3)
  1. SIMVASTATIN [Suspect]
     Route: 048
  2. IBUPROFEN [Suspect]
  3. ASPIRIN [Suspect]

REACTIONS (1)
  - OVERDOSE [None]
